FAERS Safety Report 9424637 (Version 1)
Quarter: 2013Q3

REPORT INFORMATION
  Report Type: Spontaneous
  Country: US (occurrence: None)
  Receive Date: 20130726
  Receipt Date: 20130726
  Transmission Date: 20140515
  Serious: Yes (Hospitalization)
  Sender: FDA-Public Use
  Company Number: None

PATIENT
  Age: 52 Year
  Sex: Female

DRUGS (2)
  1. GEMCITABINE [Suspect]
     Indication: FALLOPIAN TUBE CANCER
     Dosage: 600 MG/M2 WEEKLY 3 OF 4 WEEKS IV DRIP
     Route: 042
     Dates: start: 20130625, end: 20130723
  2. PANITUMUMAB [Suspect]
     Indication: FALLOPIAN TUBE CANCER
     Route: 042
     Dates: start: 20130625, end: 20130723

REACTIONS (7)
  - Nausea [None]
  - Vomiting [None]
  - Abdominal pain [None]
  - Drug ineffective [None]
  - Intestinal obstruction [None]
  - Tachycardia [None]
  - Dehydration [None]
